FAERS Safety Report 16347190 (Version 2)
Quarter: 2020Q1

REPORT INFORMATION
  Report Type: Spontaneous
  Country: IN (occurrence: IN)
  Receive Date: 20190523
  Receipt Date: 20200303
  Transmission Date: 20200409
  Serious: Yes (Other)
  Sender: FDA-Public Use
  Company Number: IN-PFIZER INC-2019213324

PATIENT
  Age: 84 Year
  Sex: Female

DRUGS (1)
  1. VORICONAZOLE. [Suspect]
     Active Substance: VORICONAZOLE
     Indication: ENDOPHTHALMITIS
     Dosage: UNK, ALTERNATE DAY (14 INTRAVITREAL INJECTIONS OF VORICONAZOLE VIA THE LIMBAL ROUTE)
     Route: 031

REACTIONS (4)
  - Off label use [Unknown]
  - Corneal bleeding [Recovering/Resolving]
  - Product use issue [Unknown]
  - Corneal disorder [Unknown]
